FAERS Safety Report 8352769-1 (Version None)
Quarter: 2012Q2

REPORT INFORMATION
  Report Type: 
  Country: None (occurrence: None)
  Receive Date: 20120511
  Receipt Date: 20120503
  Transmission Date: 20120825
  Serious: Yes (Hospitalization, Other)
  Sender: FDA-Public Use
  Company Number: US-ASTELLAS-2012US004497

PATIENT

DRUGS (7)
  1. CLONAZEPAM [Concomitant]
     Indication: PANIC ATTACK
  2. MIRAPEX [Concomitant]
     Indication: RESTLESS LEGS SYNDROME
     Dosage: 1 MG, UID/QD
     Route: 048
  3. VESICARE [Suspect]
     Indication: HYPERTONIC BLADDER
     Dosage: 10 MG, UID/QD
     Route: 048
     Dates: start: 20100101
  4. BUMETANIDE [Concomitant]
     Indication: FLUID RETENTION
     Dosage: 2 MG, BID
     Route: 048
     Dates: start: 20070101
  5. CITALOPRAM HYDROBROMIDE [Concomitant]
     Indication: DEPRESSION
     Dosage: 40 MG, UID/QD
     Route: 048
     Dates: start: 20020101
  6. SYNTHROID [Concomitant]
     Indication: THYROID DISORDER
     Dosage: 0.5 MG, UID/QD
     Route: 048
     Dates: start: 19920101
  7. CLONAZEPAM [Concomitant]
     Indication: CONVULSION
     Dosage: 2 MG, UID/QD
     Route: 048
     Dates: start: 20020101

REACTIONS (2)
  - ABASIA [None]
  - CHEST PAIN [None]
